FAERS Safety Report 8990370 (Version 4)
Quarter: 2013Q2

REPORT INFORMATION
  Report Type: Spontaneous
  Country: US (occurrence: US)
  Receive Date: 20121228
  Receipt Date: 20130627
  Transmission Date: 20140414
  Serious: Yes (Hospitalization, Disabling, Other)
  Sender: FDA-Public Use
  Company Number: US-009507513-1203USA01170

PATIENT
  Sex: Female

DRUGS (5)
  1. FOSAMAX [Suspect]
     Indication: OSTEOPOROSIS PROPHYLAXIS
     Dosage: 70 MG, UNK
     Route: 048
     Dates: start: 2000, end: 200801
  2. FOSAMAX [Suspect]
     Dosage: 35 MG, UNK
     Route: 048
  3. CENTRUM SILVER [Concomitant]
     Dosage: UNK
     Route: 048
  4. PAXIL [Concomitant]
  5. ALENDRONATE SODIUM [Suspect]
     Dosage: 70 MG, UNK
     Dates: start: 200802, end: 20110331

REACTIONS (16)
  - Femur fracture [Unknown]
  - Intramedullary rod insertion [Unknown]
  - Femur fracture [Recovered/Resolved]
  - Intramedullary rod insertion [Unknown]
  - Forearm fracture [Unknown]
  - Closed fracture manipulation [Unknown]
  - Atelectasis [Unknown]
  - Hypertension [Unknown]
  - Low turnover osteopathy [Unknown]
  - Blood cholesterol increased [Unknown]
  - Tooth extraction [Unknown]
  - Periodontal operation [Unknown]
  - Osteoporosis [Unknown]
  - Impaired healing [Unknown]
  - Osteoarthritis [Unknown]
  - Arthralgia [Unknown]
